FAERS Safety Report 8283088-X (Version None)
Quarter: 2012Q2

REPORT INFORMATION
  Report Type: 
  Country: None (occurrence: None)
  Receive Date: 20120413
  Receipt Date: 20120404
  Transmission Date: 20120825
  Serious: Yes (Hospitalization)
  Sender: FDA-Public Use
  Company Number: CA-VERTEX PHARMACEUTICALS INC.-AE-2012-004019

PATIENT

DRUGS (6)
  1. INCIVEK [Suspect]
     Indication: HEPATITIS C
     Route: 048
     Dates: start: 20120222, end: 20120305
  2. RIBAVIRIN [Concomitant]
     Indication: HEPATITIS C
     Route: 048
     Dates: start: 20120222, end: 20120305
  3. PRILOSEC [Concomitant]
  4. METFORMIN HCL [Concomitant]
  5. MICARDIS [Concomitant]
  6. INTERFERON [Concomitant]
     Indication: HEPATITIS C
     Route: 048
     Dates: start: 20120222, end: 20120305

REACTIONS (5)
  - DEHYDRATION [None]
  - NAUSEA [None]
  - VOMITING [None]
  - RENAL IMPAIRMENT [None]
  - HAEMOGLOBIN DECREASED [None]
